FAERS Safety Report 24213309 (Version 1)
Quarter: 2024Q3

REPORT INFORMATION
  Report Type: Other
  Country: CA (occurrence: CA)
  Receive Date: 20240815
  Receipt Date: 20240815
  Transmission Date: 20241017
  Serious: Yes (Other)
  Sender: DUCHESNAY
  Company Number: CA-MEDUNIK-2024CA000318

PATIENT

DRUGS (10)
  1. SODIUM PHENYLBUTYRATE [Suspect]
     Active Substance: SODIUM PHENYLBUTYRATE
     Indication: Product used for unknown indication
     Route: 065
  2. RAVICTI [Suspect]
     Active Substance: GLYCEROL PHENYLBUTYRATE
     Indication: Urea cycle disorder
     Dosage: 2.0 MILLILITER, 1 DOSE EVERY 8 HOURS
     Route: 065
  3. RAVICTI [Suspect]
     Active Substance: GLYCEROL PHENYLBUTYRATE
     Dosage: 1.5 MILLILITER, 1 DOSE EVERY 8 HOURS
     Route: 065
  4. ARGININE [Concomitant]
     Active Substance: ARGININE
     Indication: Product used for unknown indication
     Route: 065
  5. CLOBAZAM [Concomitant]
     Active Substance: CLOBAZAM
     Indication: Product used for unknown indication
     Route: 065
  6. FAMOTIDINE [Concomitant]
     Active Substance: FAMOTIDINE
     Indication: Product used for unknown indication
     Dosage: UNK
     Route: 065
  7. KEPPRA [Concomitant]
     Active Substance: LEVETIRACETAM
     Indication: Product used for unknown indication
     Route: 065
  8. PHENOBARBITAL [Concomitant]
     Active Substance: PHENOBARBITAL
     Indication: Product used for unknown indication
     Route: 065
  9. TOPIRAMATE [Concomitant]
     Active Substance: TOPIRAMATE
     Indication: Product used for unknown indication
     Route: 065
  10. VITAMIN D [Concomitant]
     Active Substance: VITAMIN D NOS
     Indication: Product used for unknown indication
     Route: 065

REACTIONS (1)
  - Seizure [Unknown]
